FAERS Safety Report 17456948 (Version 1)
Quarter: 2020Q1

REPORT INFORMATION
  Report Type: Spontaneous
  Country: US (occurrence: US)
  Receive Date: 20200225
  Receipt Date: 20200225
  Transmission Date: 20200409
  Serious: No
  Sender: FDA-Public Use
  Company Number: US-JNJFOC-20200202999

PATIENT
  Age: 79 Year

DRUGS (1)
  1. TYLENOL [Suspect]
     Active Substance: ACETAMINOPHEN
     Indication: PAIN
     Dosage: 12 PILLS A DAY
     Route: 065

REACTIONS (3)
  - Overdose [Unknown]
  - Liver disorder [Unknown]
  - Renal disorder [Unknown]
